FAERS Safety Report 4960330-1 (Version None)
Quarter: 2006Q2

REPORT INFORMATION
  Report Type: 
  Country: None (occurrence: None)
  Receive Date: 20060403
  Receipt Date: 20060306
  Transmission Date: 20061013
  Serious: Yes (Death, Life-Threatening, Hospitalization, Disabling)
  Sender: FDA-Public Use
  Company Number: JP-BRISTOL-MYERS SQUIBB COMPANY-13310800

PATIENT
  Age: 56 Year
  Sex: Male

DRUGS (2)
  1. IFOMIDE [Suspect]
     Indication: BONE SARCOMA
     Route: 041
     Dates: start: 20060201, end: 20060227
  2. VEPESID [Concomitant]
     Indication: LIPOSARCOMA METASTATIC
     Route: 041
     Dates: start: 20060225, end: 20060227

REACTIONS (14)
  - BLOOD CHLORIDE DECREASED [None]
  - BRAIN DEATH [None]
  - BRAIN OEDEMA [None]
  - CARDIAC ARREST [None]
  - CONTUSION [None]
  - DIARRHOEA [None]
  - ENCEPHALOPATHY [None]
  - FANCONI SYNDROME [None]
  - HYPOKALAEMIA [None]
  - LOSS OF CONSCIOUSNESS [None]
  - MYDRIASIS [None]
  - RENAL FAILURE ACUTE [None]
  - RESPIRATORY ARREST [None]
  - VENTRICULAR FIBRILLATION [None]
